FAERS Safety Report 18138741 (Version 1)
Quarter: 2020Q3

REPORT INFORMATION
  Report Type: Other
  Country: PL (occurrence: PL)
  Receive Date: 20200812
  Receipt Date: 20200812
  Transmission Date: 20201103
  Serious: Yes (Hospitalization)
  Sender: FDA-Public Use
  Company Number: PL-ORCHID HEALTHCARE-2088509

PATIENT
  Age: 58 Year
  Sex: Male

DRUGS (1)
  1. PANTOPRAZOLE SODIUM. [Suspect]
     Active Substance: PANTOPRAZOLE SODIUM
     Indication: GASTRIC DISORDER
     Route: 065

REACTIONS (2)
  - Iron deficiency anaemia [Recovered/Resolved]
  - Vitamin B12 deficiency [Recovered/Resolved]
